FAERS Safety Report 24229539 (Version 1)
Quarter: 2024Q3

REPORT INFORMATION
  Report Type: Spontaneous
  Country: BR (occurrence: BR)
  Receive Date: 20240820
  Receipt Date: 20240820
  Transmission Date: 20241016
  Serious: Yes (Other)
  Sender: BRISTOL MYERS SQUIBB
  Company Number: BR-BRISTOL-MYERS SQUIBB COMPANY-2024-130485

PATIENT
  Age: 19 Year
  Sex: Male
  Weight: 73 kg

DRUGS (1)
  1. ELIQUIS [Suspect]
     Active Substance: APIXABAN
     Indication: Product used for unknown indication
     Route: 048

REACTIONS (5)
  - Pulmonary embolism [Unknown]
  - Pelvic venous thrombosis [Unknown]
  - Influenza [Unknown]
  - Gastroenteritis [Unknown]
  - Product dose omission issue [Unknown]

NARRATIVE: CASE EVENT DATE: 20240101
